FAERS Safety Report 5795571-7 (Version None)
Quarter: 2008Q2

REPORT INFORMATION
  Report Type: 
  Country: None (occurrence: None)
  Receive Date: 20080630
  Receipt Date: 20080618
  Transmission Date: 20081010
  Serious: Yes (Other)
  Sender: FDA-Public Use
  Company Number: DE-PFIZER INC-2008051289

PATIENT
  Age: 10 Year
  Sex: Female
  Weight: 26 kg

DRUGS (2)
  1. GENOTROPIN [Suspect]
     Indication: GROWTH HORMONE DEFICIENCY
     Route: 058
  2. MEDIKINET [Concomitant]
     Dosage: DAILY DOSE:30MG
     Route: 048

REACTIONS (1)
  - ATTENTION DEFICIT/HYPERACTIVITY DISORDER [None]
